FAERS Safety Report 7062603 (Version 16)
Quarter: 2012Q4

REPORT INFORMATION
  Report Type: 
  Country: US (occurrence: US)
  Receive Date: 20090724
  Receipt Date: 20121010
  Transmission Date: 20130627
  Serious: Yes (Death, Hospitalization, Other)
  Sender: FDA-Public Use
  Company Number: PHEH2009US07511

PATIENT
  Age: 53 Year
  Sex: Female
  Weight: 63.6 kg

DRUGS (30)
  1. AREDIA [Suspect]
     Route: 042
  2. ZOMETA [Suspect]
     Dosage: 4 mg, QMO
     Route: 042
  3. FENTANYL [Concomitant]
  4. LIDOCAINE [Concomitant]
  5. PROPOFOL [Concomitant]
  6. COUMADIN [Concomitant]
  7. METHADONE [Concomitant]
     Dosage: 10 mg, TID
     Route: 048
  8. CYMBALTA [Concomitant]
     Dosage: 60 mg, QD
     Route: 048
  9. LYRICA [Concomitant]
  10. FLEXERIL [Concomitant]
  11. WELLBUTRIN [Concomitant]
  12. LEXAPRO [Concomitant]
  13. TRAZODONE [Concomitant]
  14. XANAX [Concomitant]
  15. SYNTHROID [Concomitant]
  16. PREVACID [Concomitant]
  17. ABRAXANE [Concomitant]
  18. AVASTIN [Concomitant]
  19. RESTORIL [Concomitant]
  20. VICODIN [Concomitant]
  21. ACCUPRIL [Concomitant]
  22. REGLAN [Concomitant]
  23. CEFEPIME [Concomitant]
     Dosage: 1 g, Q12H
     Route: 042
  24. FLAGYL [Concomitant]
     Dosage: 500 mg, Q12H
     Route: 042
  25. ZOSYN [Concomitant]
  26. PROTONIX [Concomitant]
  27. VANCOMYCIN [Concomitant]
  28. NEURONTIN [Concomitant]
  29. TETANUS VACCINE                    /01594701/ [Concomitant]
  30. DIPHTHERIA VACCINE [Concomitant]

REACTIONS (84)
  - Death [Fatal]
  - Pneumonia [Unknown]
  - Animal bite [Unknown]
  - Weight decreased [Unknown]
  - Osteonecrosis of jaw [Unknown]
  - Exposed bone in jaw [Unknown]
  - General physical health deterioration [Unknown]
  - Pain [Unknown]
  - Anhedonia [Unknown]
  - Anxiety [Unknown]
  - Neoplasm progression [Unknown]
  - Malignant neoplasm progression [Unknown]
  - Metastases to liver [Unknown]
  - Hypertension [Unknown]
  - Bronchitis [Unknown]
  - Pulmonary embolism [Unknown]
  - Pulmonary hilum mass [Unknown]
  - Haemoptysis [Unknown]
  - Lumbar spinal stenosis [Unknown]
  - Gastrooesophageal reflux disease [Unknown]
  - Confusional state [Unknown]
  - Osteoarthritis [Unknown]
  - Breast cancer metastatic [Unknown]
  - Neuropathy peripheral [Unknown]
  - Mental status changes [Unknown]
  - Hallucination [Unknown]
  - Metastases to bone [Unknown]
  - Depression [Unknown]
  - Oral pain [Unknown]
  - Mouth ulceration [Unknown]
  - Spondylolisthesis [Unknown]
  - Intervertebral disc degeneration [Unknown]
  - Intervertebral disc protrusion [Unknown]
  - Back pain [Unknown]
  - Gastrointestinal haemorrhage [Unknown]
  - Tachycardia [Unknown]
  - Normochromic normocytic anaemia [Unknown]
  - Rash erythematous [Recovering/Resolving]
  - Hypercholesterolaemia [Unknown]
  - Synovitis [Unknown]
  - Deep vein thrombosis [Unknown]
  - Hypothyroidism [Unknown]
  - Hiatus hernia [Unknown]
  - Injury [Unknown]
  - Suicidal ideation [Unknown]
  - Splenomegaly [Unknown]
  - Hepatomegaly [Unknown]
  - Acquired oesophageal web [Unknown]
  - Haemorrhoids [Unknown]
  - Acquired diaphragmatic eventration [Unknown]
  - Brain neoplasm malignant [Unknown]
  - Malignant neoplasm of spinal cord [Unknown]
  - Neck pain [Unknown]
  - Cervicobrachial syndrome [Unknown]
  - Mitral valve calcification [Unknown]
  - Atelectasis [Unknown]
  - Bursitis [Recovered/Resolved]
  - Foot fracture [Unknown]
  - Spinal osteoarthritis [Unknown]
  - Road traffic accident [Unknown]
  - Loss of consciousness [Unknown]
  - Syncope [Unknown]
  - Respiratory distress [Unknown]
  - Chest pain [Unknown]
  - Cough [Unknown]
  - Diarrhoea [Unknown]
  - Nausea [Unknown]
  - Abdominal pain [Unknown]
  - Stomatitis [Unknown]
  - Dysphonia [Unknown]
  - Dyspnoea exertional [Unknown]
  - Epistaxis [Unknown]
  - Weight increased [Unknown]
  - Night sweats [Unknown]
  - Oedema peripheral [Recovering/Resolving]
  - Pyrexia [Unknown]
  - Arthralgia [Unknown]
  - Arthropathy [Unknown]
  - Gastritis [Unknown]
  - Joint swelling [Recovering/Resolving]
  - Laceration [Unknown]
  - Dry mouth [Unknown]
  - Synovial cyst [Unknown]
  - Coagulopathy [Unknown]
